FAERS Safety Report 24832031 (Version 1)
Quarter: 2025Q1

REPORT INFORMATION
  Report Type: Spontaneous
  Country: US (occurrence: None)
  Receive Date: 20250109
  Receipt Date: 20250109
  Transmission Date: 20250409
  Serious: Yes (Death)
  Sender: FDA-CTU
  Company Number: None

PATIENT
  Age: 60 Year
  Sex: Male
  Weight: 71.14 kg

DRUGS (21)
  1. TACROLIMUS [Suspect]
     Active Substance: TACROLIMUS
     Indication: Prophylaxis against transplant rejection
     Dosage: FREQUENCY : TWICE A DAY;?
     Route: 048
  2. ENTECAVIR [Suspect]
     Active Substance: ENTECAVIR
     Indication: Hepatitis B
     Dosage: FREQUENCY : DAILY;?
     Route: 048
  3. TAMSULOSIN HYDROCHLORIDE [Concomitant]
     Active Substance: TAMSULOSIN HYDROCHLORIDE
  4. PREDNISONE [Concomitant]
     Active Substance: PREDNISONE
  5. posaconazole 100 mg DR tablet [Concomitant]
  6. FAMCICLOVIR [Concomitant]
     Active Substance: FAMCICLOVIR
  7. METFORMIN [Concomitant]
     Active Substance: METFORMIN HYDROCHLORIDE
     Dates: start: 20240911, end: 20240914
  8. famotadine 40 mg [Concomitant]
  9. Humulin N U-100 kwik pen [Concomitant]
  10. Insulin lispro U-100 Kwik pen [Concomitant]
  11. BD Nano Pen needles [Concomitant]
  12. JAKAFI [Concomitant]
     Active Substance: RUXOLITINIB
     Dates: start: 20240718, end: 20240819
  13. aspirin 325 mg EC tablets [Concomitant]
  14. FLUCONAZOLE [Concomitant]
     Active Substance: FLUCONAZOLE
     Dates: start: 20240426, end: 20240812
  15. vitamin B6 tablet [Concomitant]
  16. isoniazid 300 mg tablet [Concomitant]
  17. GABAPENTIN [Concomitant]
     Active Substance: GABAPENTIN
  18. loratadine10 mg tablet [Concomitant]
  19. CARVEDILOL [Concomitant]
     Active Substance: CARVEDILOL
  20. LEVOFLOXACIN [Concomitant]
     Active Substance: LEVOFLOXACIN
     Dates: start: 20240426, end: 20240926
  21. sulfamethoxazole/trimethoprim 400 mg/80 mg [Concomitant]
     Dates: start: 20240426, end: 20240612

REACTIONS (1)
  - Complications of transplanted kidney [None]

NARRATIVE: CASE EVENT DATE: 20241030
